FAERS Safety Report 5499451-6 (Version None)
Quarter: 2007Q4

REPORT INFORMATION
  Report Type: 
  Country: None (occurrence: None)
  Receive Date: 20071026
  Receipt Date: 20071024
  Transmission Date: 20080405
  Serious: Yes (Hospitalization)
  Sender: FDA-Public Use
  Company Number: FR-BRISTOL-MYERS SQUIBB COMPANY-13955604

PATIENT
  Age: 61 Year
  Sex: Female

DRUGS (5)
  1. APROVEL [Suspect]
     Indication: HYPERTENSION
  2. TEGRETOL [Suspect]
     Indication: EPILEPSY
     Dosage: TEGRETOL LP 200 MG
     Dates: end: 20070630
  3. ATHYMIL [Suspect]
  4. DEPAKOTE [Suspect]
     Indication: EPILEPSY
  5. DOLIPRANE [Suspect]
     Indication: PAIN

REACTIONS (1)
  - HYPONATRAEMIA [None]
